FAERS Safety Report 19430095 (Version 1)
Quarter: 2021Q2

REPORT INFORMATION
  Report Type: Spontaneous
  Country: FR (occurrence: FR)
  Receive Date: 20210617
  Receipt Date: 20210617
  Transmission Date: 20210717
  Serious: Yes (Other)
  Sender: FDA-Public Use
  Company Number: FR-BAUSCH-BL-2021-019944

PATIENT
  Age: 65 Year
  Sex: Male

DRUGS (4)
  1. RUXOLITINIB [Concomitant]
     Active Substance: RUXOLITINIB
     Indication: CHRONIC GRAFT VERSUS HOST DISEASE
  2. IMIQUIMOD. [Suspect]
     Active Substance: IMIQUIMOD
     Indication: SKIN PAPILLOMA
     Route: 061
  3. 5?FLUOROURACIL [Suspect]
     Active Substance: FLUOROURACIL
     Indication: SKIN PAPILLOMA
     Route: 061
  4. INGENOL MEBUTATE. [Suspect]
     Active Substance: INGENOL MEBUTATE
     Indication: SKIN PAPILLOMA
     Route: 061

REACTIONS (2)
  - Chronic graft versus host disease in skin [Recovered/Resolved]
  - Disease recurrence [Recovered/Resolved]
